FAERS Safety Report 12488158 (Version 3)
Quarter: 2016Q3

REPORT INFORMATION
  Report Type: Spontaneous
  Country: US (occurrence: US)
  Receive Date: 20160622
  Receipt Date: 20160811
  Transmission Date: 20161109
  Serious: No
  Sender: FDA-Public Use
  Company Number: US-PFIZER INC-2016308012

PATIENT
  Age: 47 Year
  Sex: Male

DRUGS (3)
  1. GABAPENTIN. [Suspect]
     Active Substance: GABAPENTIN
     Indication: NEURALGIA
     Dosage: HE WAS STARTED ON A LOWER DOSE AND THEY KEPT INCREASING HIS DOSE
  2. GABAPENTIN. [Suspect]
     Active Substance: GABAPENTIN
     Dosage: TAKING A TOTAL OF 2700 MG A DAY, THREE 300 MG CAPSULE THREE TIMES A DAY.
     Dates: start: 201506
  3. NEURONTIN [Suspect]
     Active Substance: GABAPENTIN
     Dosage: UNK

REACTIONS (2)
  - Drug ineffective for unapproved indication [Unknown]
  - Intentional product misuse [Unknown]
